FAERS Safety Report 4871605-9 (Version None)
Quarter: 2005Q4

REPORT INFORMATION
  Report Type: 
  Country: None (occurrence: None)
  Receive Date: 20051230
  Receipt Date: 20051219
  Transmission Date: 20060501
  Serious: Yes (Hospitalization)
  Sender: FDA-Public Use
  Company Number: 108528ISR

PATIENT
  Sex: Female

DRUGS (1)
  1. GLATIRAMER ACETATE [Suspect]
     Dosage: 20 MILLIGRAM; SUBCUTANEOUS
     Route: 058
     Dates: start: 20051101

REACTIONS (1)
  - LUNG DISORDER [None]
